FAERS Safety Report 14274729 (Version 2)
Quarter: 2017Q4

REPORT INFORMATION
  Report Type: Report from Study
  Country: ES (occurrence: ES)
  Receive Date: 20171212
  Receipt Date: 20171221
  Transmission Date: 20180321
  Serious: Yes (Death, Hospitalization)
  Sender: FDA-Public Use
  Company Number: ES-PFIZER INC-2017525472

PATIENT
  Age: 88 Year

DRUGS (5)
  1. GABAPENTIN. [Suspect]
     Active Substance: GABAPENTIN
     Indication: BACK PAIN
     Dosage: 300 MG, EVERY 3 DAYS
     Route: 048
     Dates: start: 20170626
  2. DUROGESIC [Suspect]
     Active Substance: FENTANYL
     Dosage: 0.5 PATCH / 72 HOURS
     Route: 062
     Dates: start: 20170626, end: 20170628
  3. KEPPRA [Suspect]
     Active Substance: LEVETIRACETAM
     Dosage: 500 MG, ALTERNATE DAY
     Route: 048
     Dates: start: 2017
  4. RISPERDAL [Suspect]
     Active Substance: RISPERIDONE
     Dosage: 0.5 MG, 2X/DAY
     Route: 048
     Dates: start: 2010
  5. DUROGESIC [Suspect]
     Active Substance: FENTANYL
     Indication: BACK PAIN
     Dosage: 0.5 PATCH / 72 HOURS
     Route: 062
     Dates: start: 2010

REACTIONS (2)
  - Depressed level of consciousness [Fatal]
  - Product use in unapproved indication [Unknown]

NARRATIVE: CASE EVENT DATE: 20170626
